FAERS Safety Report 24531663 (Version 1)
Quarter: 2024Q4

REPORT INFORMATION
  Report Type: Report from Study
  Country: US (occurrence: US)
  Receive Date: 20241022
  Receipt Date: 20241022
  Transmission Date: 20250114
  Serious: No
  Sender: ROCHE
  Company Number: US-ROCHE-3555296

PATIENT
  Age: 11 Year
  Sex: Male

DRUGS (3)
  1. PULMOZYME [Suspect]
     Active Substance: DORNASE ALFA
     Indication: Cystic fibrosis
     Dosage: NEBULIZE THE CONTENTS OF 1 VIAL(S) DAILY
     Route: 055
  2. PULMOZYME [Suspect]
     Active Substance: DORNASE ALFA
     Indication: Infective pulmonary exacerbation of cystic fibrosis
  3. PULMOZYME [Suspect]
     Active Substance: DORNASE ALFA
     Indication: Pancreatic disorder

REACTIONS (1)
  - Crohn^s disease [Unknown]
